FAERS Safety Report 8508819-2 (Version None)
Quarter: 2012Q3

REPORT INFORMATION
  Report Type: 
  Country: None (occurrence: None)
  Receive Date: 20120713
  Receipt Date: 20120629
  Transmission Date: 20120928
  Serious: Yes (Other)
  Sender: FDA-Public Use
  Company Number: US-UCBSA-061232

PATIENT

DRUGS (1)
  1. LEVETIRACETAM [Suspect]
     Dosage: 6000 MG

REACTIONS (2)
  - SOMNOLENCE [None]
  - OVERDOSE [None]
